FAERS Safety Report 6013482-9 (Version None)
Quarter: 2008Q4

REPORT INFORMATION
  Report Type: 
  Country: None (occurrence: None)
  Receive Date: 20081219
  Receipt Date: 20081209
  Transmission Date: 20090506
  Serious: Yes (Other)
  Sender: FDA-Public Use
  Company Number: NL-JNJFOC-20081202632

PATIENT
  Age: 74 Year
  Sex: Female

DRUGS (10)
  1. REMICADE [Suspect]
     Indication: RHEUMATOID ARTHRITIS
     Route: 042
  2. OXYCONTIN [Concomitant]
  3. PREDNISLONE [Concomitant]
  4. METHOTREXATE [Concomitant]
  5. ARCOXIA [Concomitant]
  6. ASCAL CARDIO [Concomitant]
  7. LORAZEPAM [Concomitant]
  8. HALDOL [Concomitant]
  9. PANTOZOL [Concomitant]
  10. ACETAMINOPHEN [Concomitant]

REACTIONS (1)
  - LUNG NEOPLASM MALIGNANT [None]
